FAERS Safety Report 9700915 (Version 1)
Quarter: 2013Q4

REPORT INFORMATION
  Report Type: Spontaneous
  Country: US (occurrence: US)
  Receive Date: 20131121
  Receipt Date: 20131121
  Transmission Date: 20140711
  Serious: Yes (Hospitalization)
  Sender: FDA-Public Use
  Company Number: US-ABBVIE-13P-163-1171791-00

PATIENT
  Age: 51 Year
  Sex: Male
  Weight: 78.54 kg

DRUGS (6)
  1. SYNTHROID [Suspect]
     Indication: HYPOTHYROIDISM
     Dates: end: 20090103
  2. SYNTHROID [Suspect]
     Indication: HYPOTHYROIDISM
     Dates: start: 20090103
  3. ASPIRIN [Suspect]
     Indication: HEADACHE
     Dosage: 2 TO 3 TIMES/DAY
     Dates: start: 201311
  4. IBUPROFEN [Suspect]
     Indication: HEADACHE
     Dosage: 2 TO 3 TIMES/DAY
  5. MULTI-VITAMIN [Concomitant]
     Indication: PRODUCT USED FOR UNKNOWN INDICATION
  6. VITAMIN B COMPLEX [Concomitant]
     Indication: PRODUCT USED FOR UNKNOWN INDICATION

REACTIONS (10)
  - Ulcer haemorrhage [Recovered/Resolved]
  - Fatigue [Recovered/Resolved]
  - Nausea [Recovered/Resolved]
  - Dizziness [Recovered/Resolved]
  - Melaena [Recovered/Resolved]
  - Loss of consciousness [Recovered/Resolved]
  - Haemoglobin decreased [Recovered/Resolved]
  - Stress [Unknown]
  - Headache [Recovered/Resolved]
  - Blood thyroid stimulating hormone decreased [Recovered/Resolved]
